FAERS Safety Report 6782317-9 (Version None)
Quarter: 2010Q2

REPORT INFORMATION
  Report Type: 
  Country: None (occurrence: None)
  Receive Date: 20100621
  Receipt Date: 20100607
  Transmission Date: 20101027
  Serious: Yes (Death)
  Sender: FDA-Public Use
  Company Number: US-MYLANLABS-2010S1009972

PATIENT
  Age: 60 Year
  Sex: Female

DRUGS (2)
  1. CARBOPLATIN [Suspect]
     Indication: ENDOMETRIAL CANCER RECURRENT
     Route: 065
  2. PACLITAXEL [Suspect]
     Indication: ENDOMETRIAL CANCER RECURRENT
     Route: 065

REACTIONS (1)
  - TUMOUR LYSIS SYNDROME [None]
